FAERS Safety Report 18504036 (Version 1)
Quarter: 2020Q4

REPORT INFORMATION
  Report Type: Spontaneous
  Country: US (occurrence: US)
  Receive Date: 20201113
  Receipt Date: 20201113
  Transmission Date: 20210114
  Serious: No
  Sender: FDA-Public Use
  Company Number: US-NOVOPROD-692713

PATIENT
  Sex: Male

DRUGS (2)
  1. FIASP [Suspect]
     Active Substance: INSULIN ASPART
     Indication: TYPE 1 DIABETES MELLITUS
     Dosage: PUMP CALCULATED DOSE
     Route: 058
     Dates: start: 201907, end: 201910
  2. HUMALOG [Concomitant]
     Active Substance: INSULIN LISPRO
     Indication: TYPE 1 DIABETES MELLITUS
     Dosage: UNK
     Route: 058

REACTIONS (3)
  - Diabetes mellitus inadequate control [Recovered/Resolved]
  - Wrong technique in product usage process [Unknown]
  - Skin papilloma [Unknown]

NARRATIVE: CASE EVENT DATE: 201909
